FAERS Safety Report 8811241 (Version 1)
Quarter: 2012Q4

REPORT INFORMATION
  Report Type: Spontaneous
  Country: US (occurrence: None)
  Receive Date: 20120924
  Receipt Date: 20120924
  Transmission Date: 20130627
  Serious: Yes (Hospitalization)
  Sender: FDA-Public Use
  Company Number: None

PATIENT
  Age: 60 Year
  Sex: Male
  Weight: 87.1 kg

DRUGS (2)
  1. DIPHENHYDRAMINE [Suspect]
     Indication: INSOMNIA
     Route: 048
     Dates: start: 20111206
  2. BACLOFEN [Suspect]
     Route: 048
     Dates: start: 20050120

REACTIONS (3)
  - Insomnia [None]
  - Sedation [None]
  - Lethargy [None]
